FAERS Safety Report 15397271 (Version 1)
Quarter: 2018Q3

REPORT INFORMATION
  Report Type: Report from Study
  Country: JP (occurrence: JP)
  Receive Date: 20180918
  Receipt Date: 20180918
  Transmission Date: 20181010
  Serious: Yes (Hospitalization, Other)
  Sender: FDA-Public Use
  Company Number: JP-ACTELION-A-CH2018-178898

PATIENT
  Sex: Female

DRUGS (13)
  1. ADCIRCA [Concomitant]
     Active Substance: TADALAFIL
  2. ONEALFA [Concomitant]
     Active Substance: ALFACALCIDOL
  3. MECOBALAMIN [Concomitant]
     Active Substance: METHYLCOBALAMIN
  4. BAYASPIRIN [Concomitant]
     Active Substance: ASPIRIN
  5. RISUMIC [Concomitant]
     Active Substance: AMEZINIUM METILSULFATE
  6. FOSRENOL [Concomitant]
     Active Substance: LANTHANUM CARBONATE
  7. OXYGEN. [Concomitant]
     Active Substance: OXYGEN
  8. OPSUMIT [Suspect]
     Active Substance: MACITENTAN
     Indication: PULMONARY ARTERIAL HYPERTENSION
     Dosage: 10 MG, UNK
     Route: 048
     Dates: start: 20151209, end: 20151210
  9. LOPRESOR R [Concomitant]
     Active Substance: METOPROLOL SUCCINATE
  10. LANSOPRAZOLE. [Concomitant]
     Active Substance: LANSOPRAZOLE
  11. AZULENE?GLUTAMINE [Concomitant]
  12. GLAKAY [Concomitant]
     Active Substance: MENATETRENONE
  13. REGPARA [Concomitant]
     Active Substance: CINACALCET HYDROCHLORIDE

REACTIONS (3)
  - Pulmonary congestion [Recovered/Resolved]
  - Volume blood increased [Recovered/Resolved]
  - Brain natriuretic peptide increased [Recovered/Resolved]

NARRATIVE: CASE EVENT DATE: 20151209
